FAERS Safety Report 23652378 (Version 2)
Quarter: 2024Q2

REPORT INFORMATION
  Report Type: Report from Study
  Country: CO (occurrence: CO)
  Receive Date: 20240320
  Receipt Date: 20240406
  Transmission Date: 20240716
  Serious: Yes (Other)
  Sender: FDA-Public Use
  Company Number: CO-ABBVIE-5681904

PATIENT
  Age: 15 Year
  Sex: Male
  Weight: 69 kg

DRUGS (1)
  1. HUMIRA [Suspect]
     Active Substance: ADALIMUMAB
     Indication: Juvenile idiopathic arthritis
     Dosage: FORM STRENGTH: 40 MG
     Route: 058
     Dates: start: 20240126

REACTIONS (5)
  - White blood cell count abnormal [Recovering/Resolving]
  - Investigation abnormal [Unknown]
  - Platelet count abnormal [Recovering/Resolving]
  - Hypersomnia [Not Recovered/Not Resolved]
  - Immunodeficiency [Unknown]

NARRATIVE: CASE EVENT DATE: 20240304
